FAERS Safety Report 4323038-1 (Version None)
Quarter: 2004Q1

REPORT INFORMATION
  Report Type: 
  Country: None (occurrence: None)
  Receive Date: 20040322
  Receipt Date: 20040309
  Transmission Date: 20041129
  Serious: Yes (Life-Threatening)
  Sender: FDA-Public Use
  Company Number: 205183

PATIENT
  Sex: Female

DRUGS (4)
  1. RITUXAN [Suspect]
     Indication: NON-HODGKIN'S LYMPHOMA
     Dosage: 375 MG/M2
  2. IV FLUIDS (INTRAVENOUS SOLUTION NOS) [Concomitant]
  3. MORPHINE [Concomitant]
  4. NARCAN [Concomitant]

REACTIONS (7)
  - BLOOD PRESSURE DECREASED [None]
  - CARDIAC FAILURE [None]
  - CARDIOMYOPATHY [None]
  - COMA [None]
  - DYSPNOEA [None]
  - EJECTION FRACTION DECREASED [None]
  - OVERDOSE [None]
